FAERS Safety Report 15632876 (Version 1)
Quarter: 2018Q4

REPORT INFORMATION
  Report Type: Spontaneous
  Country: US (occurrence: US)
  Receive Date: 20181113
  Receipt Date: 20181113
  Transmission Date: 20190205
  Serious: Yes (Other)
  Sender: FDA-Public Use
  Company Number: None

PATIENT
  Age: 73 Year
  Sex: Female
  Weight: 70.65 kg

DRUGS (12)
  1. CLINDAMYCIN. [Concomitant]
     Active Substance: CLINDAMYCIN
  2. CALCIUM [Concomitant]
     Active Substance: CALCIUM
  3. HYDROCODONE-APAP [Concomitant]
     Active Substance: ACETAMINOPHEN\HYDROCODONE
  4. MULTIVITAMINS [Concomitant]
     Active Substance: VITAMINS
  5. TURMERIC [Concomitant]
     Active Substance: HERBALS\TURMERIC
  6. VITAMIN D [Concomitant]
     Active Substance: CHOLECALCIFEROL
  7. FISH OIL + D3 [Concomitant]
  8. SELENIUM [Concomitant]
     Active Substance: SELENIUM
  9. IBRANCE [Suspect]
     Active Substance: PALBOCICLIB
     Indication: BREAST CANCER
     Route: 048
     Dates: start: 20180507
  10. OLANZAPINE. [Concomitant]
     Active Substance: OLANZAPINE
  11. FASLODEX [Concomitant]
     Active Substance: FULVESTRANT
  12. MELATONIN [Concomitant]
     Active Substance: MELATONIN

REACTIONS (1)
  - Disease progression [None]
